FAERS Safety Report 6024204-X (Version None)
Quarter: 2008Q4

REPORT INFORMATION
  Report Type: 
  Country: None (occurrence: None)
  Receive Date: 20081224
  Receipt Date: 20081219
  Transmission Date: 20090506
  Serious: Yes (Other)
  Sender: FDA-Public Use
  Company Number: 430005K08USA

PATIENT
  Age: 37 Year
  Sex: Female
  Weight: 50 kg

DRUGS (4)
  1. NOVANTRONE [Suspect]
     Indication: MULTIPLE SCLEROSIS
     Dosage: 12 MG/M2, INTRAVENOUS (NOT OTHERWISE SPECIFIED)
     Route: 042
     Dates: start: 20070501, end: 20080301
  2. NEURONTIN [Concomitant]
  3. BACLOFEN [Concomitant]
  4. FLEXERIL [Concomitant]

REACTIONS (1)
  - EJECTION FRACTION DECREASED [None]
